FAERS Safety Report 6341377-X (Version None)
Quarter: 2009Q3

REPORT INFORMATION
  Report Type: 
  Country: None (occurrence: None)
  Receive Date: 20090904
  Receipt Date: 20090828
  Transmission Date: 20100115
  Serious: Yes (Other)
  Sender: FDA-Public Use
  Company Number: DE-VALEANT-2009VX001602

PATIENT
  Age: 33 Year
  Sex: Female

DRUGS (4)
  1. DIHYDROERGOTAMINE MESYLATE [Suspect]
     Route: 042
     Dates: start: 19900504, end: 19900504
  2. DEXTRAN INJ [Suspect]
     Route: 065
     Dates: start: 19900504, end: 19900504
  3. PROSTAGLANDINS [Suspect]
     Indication: PROLONGED PREGNANCY
     Route: 065
     Dates: start: 19900504, end: 19900504
  4. CONTRACTION INDUCING DRUGS [Suspect]
     Route: 065
     Dates: start: 19900504, end: 19900504

REACTIONS (2)
  - CAESAREAN SECTION [None]
  - DRUG EXPOSURE DURING PREGNANCY [None]
